FAERS Safety Report 8528741-5 (Version None)
Quarter: 2012Q3

REPORT INFORMATION
  Report Type: 
  Country: None (occurrence: None)
  Receive Date: 20120723
  Receipt Date: 20120712
  Transmission Date: 20120928
  Serious: No
  Sender: FDA-Public Use
  Company Number: US-009507513-2012SP023189

PATIENT

DRUGS (4)
  1. RIBAVIRIN [Suspect]
     Dosage: 600 MG, BID
  2. PEG-INTRON [Suspect]
  3. VICTRELIS [Suspect]
     Indication: HEPATITIS C
     Dosage: 800 MG, Q8H
     Route: 048
     Dates: start: 20120313, end: 20120416
  4. PEGASYS [Concomitant]
     Dosage: 180 MICROGRAM, QW

REACTIONS (1)
  - CHEST PAIN [None]
